FAERS Safety Report 23987731 (Version 1)
Quarter: 2024Q2

REPORT INFORMATION
  Report Type: Spontaneous
  Country: IT (occurrence: IT)
  Receive Date: 20240619
  Receipt Date: 20240619
  Transmission Date: 20240715
  Serious: Yes (Other)
  Sender: FDA-Public Use
  Company Number: IT-APIL-2313560US

PATIENT
  Age: 89 Year
  Sex: Male

DRUGS (6)
  1. SILODOSIN [Suspect]
     Active Substance: SILODOSIN
     Indication: Benign prostatic hyperplasia
     Dosage: DAILY DOSE: 8.0 MG
     Route: 048
     Dates: start: 202211
  2. SILODOSIN [Suspect]
     Active Substance: SILODOSIN
     Indication: Benign prostatic hyperplasia
     Route: 048
     Dates: start: 202111, end: 202211
  3. BISOPROLOL [Concomitant]
     Active Substance: BISOPROLOL\BISOPROLOL FUMARATE
     Indication: Hypertension
     Dosage: DAILY DOSE: 2.5 MG
  4. RAMIPRIL [Concomitant]
     Active Substance: RAMIPRIL
     Indication: Hypertension
     Dosage: DAILY DOSE: 5.0 MG
  5. CELEBREX [Concomitant]
     Active Substance: CELECOXIB
     Indication: Neck pain
     Dosage: DOSE DESC: UNK
  6. ELIQUIS [Concomitant]
     Active Substance: APIXABAN
     Indication: Thrombosis prophylaxis
     Dosage: DOSE DESC: UNK

REACTIONS (3)
  - Heart rate increased [Unknown]
  - Homonymous diplopia [Recovered/Resolved]
  - Urticaria [Unknown]
